APPROVED DRUG PRODUCT: MORPHINE SULFATE
Active Ingredient: MORPHINE SULFATE
Strength: 100MG/5ML
Dosage Form/Route: SOLUTION;ORAL
Application: A206573 | Product #001 | TE Code: AA
Applicant: PHARMACEUTICAL ASSOCIATES INC
Approved: Nov 14, 2016 | RLD: No | RS: No | Type: RX